FAERS Safety Report 21339444 (Version 1)
Quarter: 2022Q3

REPORT INFORMATION
  Report Type: Spontaneous
  Country: US (occurrence: US)
  Receive Date: 20220915
  Receipt Date: 20220915
  Transmission Date: 20221026
  Serious: No
  Sender: FDA-Public Use
  Company Number: US-SA-SAC20220909001114

PATIENT
  Sex: Male

DRUGS (11)
  1. DUPIXENT [Suspect]
     Active Substance: DUPILUMAB
     Indication: Dermatitis atopic
     Dosage: 300 MG QOW
     Route: 058
     Dates: start: 20220304
  2. DUPIXENT [Suspect]
     Active Substance: DUPILUMAB
     Indication: Pemphigoid
  3. KETOCONAZOLE [Concomitant]
     Active Substance: KETOCONAZOLE
  4. ALLEGRA ALLERGY [Concomitant]
     Active Substance: FEXOFENADINE HYDROCHLORIDE
  5. BONIVA [Concomitant]
     Active Substance: IBANDRONATE SODIUM
  6. FERROUS GLUCONATE [Concomitant]
     Active Substance: FERROUS GLUCONATE
  7. MYCOPHENOLATE MOFETIL [Concomitant]
     Active Substance: MYCOPHENOLATE MOFETIL
  8. NIACIN [Concomitant]
     Active Substance: NIACIN
  9. CALCIUM [Concomitant]
     Active Substance: CALCIUM
  10. TUMS [Concomitant]
     Active Substance: CALCIUM CARBONATE
  11. VITAMIN D3 [Concomitant]
     Active Substance: CHOLECALCIFEROL

REACTIONS (4)
  - Lacrimation increased [Unknown]
  - Hordeolum [Unknown]
  - Dry eye [Unknown]
  - Product use in unapproved indication [Unknown]
